FAERS Safety Report 18995469 (Version 1)
Quarter: 2021Q1

REPORT INFORMATION
  Report Type: Spontaneous
  Country: US (occurrence: US)
  Receive Date: 20210311
  Receipt Date: 20210311
  Transmission Date: 20210420
  Serious: No
  Sender: FDA-Public Use
  Company Number: US-ALLERGAN-2015120US

PATIENT
  Sex: Male

DRUGS (1)
  1. VIIBRYD [Suspect]
     Active Substance: VILAZODONE HYDROCHLORIDE
     Indication: PRODUCT USED FOR UNKNOWN INDICATION
     Dosage: 20 MG
     Route: 065
     Dates: end: 201905

REACTIONS (7)
  - Sexual dysfunction [Unknown]
  - Disturbance in sexual arousal [Unknown]
  - Loss of libido [Unknown]
  - Muscle twitching [Recovered/Resolved]
  - Erectile dysfunction [Unknown]
  - Muscle spasms [Recovered/Resolved]
  - Spontaneous penile erection [Unknown]

NARRATIVE: CASE EVENT DATE: 2019
